FAERS Safety Report 10221031 (Version 2)
Quarter: 2014Q2

REPORT INFORMATION
  Report Type: Spontaneous
  Country: US (occurrence: US)
  Receive Date: 20140606
  Receipt Date: 20140620
  Transmission Date: 20141212
  Serious: Yes (Hospitalization)
  Sender: FDA-Public Use
  Company Number: US-BEH-2014042895

PATIENT
  Age: 48 Year
  Sex: Female
  Weight: 85 kg

DRUGS (15)
  1. BERINERT [Suspect]
     Indication: COMPLEMENT FACTOR ABNORMAL
     Dosage: SLOW INJECTION, RATE OF 4 ML PER MIN
     Route: 042
     Dates: start: 20131106
  2. BERINERT [Suspect]
     Indication: ENZYME ABNORMALITY
     Dosage: SLOW INJECTION, RATE OF 4 ML PER MIN
     Route: 042
     Dates: start: 20131106
  3. BERINERT [Suspect]
     Indication: COMPLEMENT FACTOR ABNORMAL
     Dosage: SLOW INJECTION, RATE OF 4 ML PER MIN
     Route: 042
     Dates: start: 20131106
  4. DIPHENHYDRAMINE [Concomitant]
  5. SODIUM CHLORIDE [Concomitant]
  6. STERILE WATER [Concomitant]
  7. CINRYZE [Concomitant]
  8. SYNTHROID [Concomitant]
  9. DULERA [Concomitant]
  10. ZOFRAN [Concomitant]
  11. ATROVENT [Concomitant]
  12. ZANTAC [Concomitant]
  13. PEPCID AC [Concomitant]
  14. FIRZAYR [Concomitant]
  15. EPIPEN [Concomitant]

REACTIONS (1)
  - Hereditary angioedema [Unknown]
